FAERS Safety Report 7292411-4 (Version None)
Quarter: 2011Q1

REPORT INFORMATION
  Report Type: 
  Country: None (occurrence: None)
  Receive Date: 20110215
  Receipt Date: 20110210
  Transmission Date: 20110831
  Serious: Yes (Other)
  Sender: FDA-Public Use
  Company Number: US-PFIZER INC-2011031066

PATIENT

DRUGS (2)
  1. GEODON [Suspect]
     Dosage: 80 UNK, 2X/DAY
  2. GEODON [Suspect]
     Dosage: 60 UNK, 2X/DAY

REACTIONS (1)
  - ORTHOSTATIC HYPOTENSION [None]
